FAERS Safety Report 7675191-X (Version None)
Quarter: 2011Q3

REPORT INFORMATION
  Report Type: 
  Country: None (occurrence: None)
  Receive Date: 20110810
  Receipt Date: 20110810
  Transmission Date: 20111222
  Serious: No
  Sender: FDA-Public Use
  Company Number: None

PATIENT
  Age: 49 Year
  Sex: Male
  Weight: 113.39 kg

DRUGS (2)
  1. PENTAZOCINE AND NALOXONE HYDROCHLORIDES [Suspect]
     Indication: INTERVERTEBRAL DISC DEGENERATION
     Dosage: 2 TAB
     Route: 048
     Dates: start: 20110620, end: 20110716
  2. ROBAXIN-750 [Concomitant]
     Route: 048

REACTIONS (4)
  - PRODUCT QUALITY ISSUE [None]
  - DRUG INEFFECTIVE [None]
  - PRODUCT MEASURED POTENCY ISSUE [None]
  - PRODUCT SUBSTITUTION ISSUE [None]
